FAERS Safety Report 25271259 (Version 1)
Quarter: 2025Q2

REPORT INFORMATION
  Report Type: Report from Study
  Country: US (occurrence: US)
  Receive Date: 20250506
  Receipt Date: 20250506
  Transmission Date: 20250717
  Serious: Yes (Death, Other)
  Sender: ACADIA PHARMACEUTICALS
  Company Number: US-ACADIA PHARMACEUTICALS INC.-ACA-2025-PIM-005133

PATIENT
  Age: 91 Year
  Sex: Female

DRUGS (12)
  1. NUPLAZID [Suspect]
     Active Substance: PIMAVANSERIN TARTRATE
     Indication: Parkinson^s disease psychosis
     Dosage: 34 MILLIGRAM, QD
     Route: 048
     Dates: start: 20240502
  2. CLONAZEPAM [Concomitant]
     Active Substance: CLONAZEPAM
  3. CLONIDINE [Concomitant]
     Active Substance: CLONIDINE
  4. DONEPEZIL [Concomitant]
     Active Substance: DONEPEZIL
  5. ELIQUIS [Concomitant]
     Active Substance: APIXABAN
  6. LINZESS [Concomitant]
     Active Substance: LINACLOTIDE
  7. RIVASTIGMINE [Concomitant]
     Active Substance: RIVASTIGMINE
  8. AMITRIPTYLINE [Concomitant]
     Active Substance: AMITRIPTYLINE
  9. AMLODIPINE BESYLATE [Concomitant]
     Active Substance: AMLODIPINE BESYLATE
  10. ESCITALOPRAM [Concomitant]
     Active Substance: ESCITALOPRAM OXALATE
  11. LEVOTHYROXINE [Concomitant]
     Active Substance: LEVOTHYROXINE
  12. RYTARY [Concomitant]
     Active Substance: CARBIDOPA\LEVODOPA

REACTIONS (1)
  - Death [Fatal]
